FAERS Safety Report 16044348 (Version 2)
Quarter: 2020Q2

REPORT INFORMATION
  Report Type: Spontaneous
  Country: US (occurrence: US)
  Receive Date: 20190306
  Receipt Date: 20200504
  Transmission Date: 20200713
  Serious: Yes (Death, Hospitalization, Other)
  Sender: FDA-Public Use
  Company Number: US-009507513-1903USA002505

PATIENT
  Sex: Male
  Weight: 81.63 kg

DRUGS (1)
  1. JANUMET [Suspect]
     Active Substance: METFORMIN HYDROCHLORIDE\SITAGLIPTIN PHOSPHATE
     Indication: TYPE 2 DIABETES MELLITUS
     Dosage: 50/1000 MG (1 TABLET), TWICE DAILY
     Route: 048
     Dates: start: 20150407, end: 201607

REACTIONS (10)
  - Tinnitus [Unknown]
  - Glycosylated haemoglobin abnormal [Unknown]
  - Neuropathy peripheral [Unknown]
  - Deafness [Unknown]
  - Groin pain [Recovered/Resolved]
  - Swelling [Recovered/Resolved]
  - Thrombocytopenia [Unknown]
  - Fatigue [Unknown]
  - Pancreatic carcinoma metastatic [Fatal]
  - Anxiety [Unknown]

NARRATIVE: CASE EVENT DATE: 20150721
